FAERS Safety Report 14950219 (Version 1)
Quarter: 2018Q2

REPORT INFORMATION
  Report Type: Report from Study
  Country: TW (occurrence: TW)
  Receive Date: 20180530
  Receipt Date: 20180530
  Transmission Date: 20180711
  Serious: Yes (Other)
  Sender: FDA-Public Use
  Company Number: TW-ACCORD-050856

PATIENT
  Age: 47 Year
  Sex: Male

DRUGS (4)
  1. FLUOROURACIL. [Suspect]
     Active Substance: FLUOROURACIL
     Indication: COLORECTAL CANCER METASTATIC
     Dosage: ALSO RECEIVED 2400 MG/M2 VIA INTRAVENOUSLY
     Route: 040
  2. FOLINIC ACID [Suspect]
     Active Substance: LEUCOVORIN
     Indication: COLORECTAL CANCER METASTATIC
  3. BEVACIZUMAB. [Suspect]
     Active Substance: BEVACIZUMAB
     Indication: COLORECTAL CANCER METASTATIC
     Dosage: REPEATED EVERY 2 WEEKS
     Route: 041
  4. IRINOTECAN [Suspect]
     Active Substance: IRINOTECAN
     Indication: COLORECTAL CANCER METASTATIC
     Dosage: OVER 2 H ON DAY 1, DOSE INCREASED FROM 120 TO 150,  180 AND 210 MG/M2

REACTIONS (2)
  - Fatigue [Unknown]
  - Leukopenia [Unknown]
